FAERS Safety Report 5562724-2 (Version None)
Quarter: 2007Q4

REPORT INFORMATION
  Report Type: 
  Country: None (occurrence: None)
  Receive Date: 20071217
  Receipt Date: 20071210
  Transmission Date: 20080405
  Serious: Yes (Other)
  Sender: FDA-Public Use
  Company Number: PHEH2006US03542

PATIENT
  Sex: Male

DRUGS (7)
  1. ZOMETA [Suspect]
  2. PERCOCET [Concomitant]
  3. NORVASC [Concomitant]
  4. DOXAZOSIN MESYLATE [Concomitant]
  5. CELEXA [Concomitant]
  6. ZOCOR [Concomitant]
  7. ACYCLOVIR [Concomitant]

REACTIONS (10)
  - ANXIETY [None]
  - BONE OPERATION [None]
  - FRACTURE REDUCTION [None]
  - INJURY [None]
  - JAW FRACTURE [None]
  - JOINT INJURY [None]
  - JOINT SURGERY [None]
  - OSTEONECROSIS [None]
  - PAIN [None]
  - SCAN ABNORMAL [None]
